FAERS Safety Report 13546688 (Version 1)
Quarter: 2017Q2

REPORT INFORMATION
  Report Type: Spontaneous
  Country: US (occurrence: US)
  Receive Date: 20170515
  Receipt Date: 20170515
  Transmission Date: 20170830
  Serious: Yes (Other)
  Sender: FDA-Public Use
  Company Number: None

PATIENT
  Age: 24 Year
  Sex: Female
  Weight: 81 kg

DRUGS (4)
  1. MOMETASONE CREAM [Concomitant]
     Active Substance: MOMETASONE
  2. IBUPROFEN. [Concomitant]
     Active Substance: IBUPROFEN
  3. FLUOXETINE [Suspect]
     Active Substance: FLUOXETINE HYDROCHLORIDE
     Indication: DEPRESSION
     Dosage: ?          QUANTITY:1 TABLET(S);?
     Route: 048
     Dates: start: 20170102
  4. WELLBUTRIN [Concomitant]
     Active Substance: BUPROPION HYDROCHLORIDE

REACTIONS (37)
  - Agitation [None]
  - Decreased appetite [None]
  - Dizziness [None]
  - Mood altered [None]
  - Libido decreased [None]
  - Eyelid pain [None]
  - Confusional state [None]
  - Asthenia [None]
  - Balance disorder [None]
  - Constipation [None]
  - Oropharyngeal pain [None]
  - Tremor [None]
  - Breath odour [None]
  - Feeling abnormal [None]
  - Somnolence [None]
  - Sleep attacks [None]
  - Headache [None]
  - Visual impairment [None]
  - Vision blurred [None]
  - Decreased interest [None]
  - Gingival bleeding [None]
  - Pain [None]
  - Myalgia [None]
  - Disturbance in attention [None]
  - Chills [None]
  - Stomatitis [None]
  - Oral mucosal blistering [None]
  - Chest discomfort [None]
  - Breast disorder [None]
  - Abnormal dreams [None]
  - Fatigue [None]
  - Dyspnoea [None]
  - Dysarthria [None]
  - Emotional disorder [None]
  - Memory impairment [None]
  - Nausea [None]
  - Depression [None]
